FAERS Safety Report 8075913-2 (Version None)
Quarter: 2012Q1

REPORT INFORMATION
  Report Type: 
  Country: None (occurrence: None)
  Receive Date: 20120127
  Receipt Date: 20120125
  Transmission Date: 20120608
  Serious: No
  Sender: FDA-Public Use
  Company Number: US-BAYER-2012-008282

PATIENT
  Sex: Female

DRUGS (2)
  1. YASMIN [Suspect]
  2. SAFYRAL [Suspect]

REACTIONS (2)
  - WEIGHT INCREASED [None]
  - WEIGHT DECREASED [None]
